FAERS Safety Report 20615601 (Version 1)
Quarter: 2022Q1

REPORT INFORMATION
  Report Type: Spontaneous
  Country: JP (occurrence: JP)
  Receive Date: 20220321
  Receipt Date: 20220321
  Transmission Date: 20220424
  Serious: Yes (Hospitalization, Other)
  Sender: FDA-Public Use
  Company Number: JP-LUPIN PHARMACEUTICALS INC.-2022-03729

PATIENT
  Age: 81 Year
  Sex: Male

DRUGS (8)
  1. RIVAROXABAN [Suspect]
     Active Substance: RIVAROXABAN
     Indication: Arterial thrombosis
     Dosage: 30 MG, QD, 15MG X 2
     Route: 065
  2. RIVAROXABAN [Suspect]
     Active Substance: RIVAROXABAN
     Indication: Intracardiac thrombus
  3. RIVAROXABAN [Suspect]
     Active Substance: RIVAROXABAN
     Indication: Pulmonary thrombosis
  4. METHYLPREDNISOLONE [Suspect]
     Active Substance: METHYLPREDNISOLONE
     Indication: Steroid therapy
     Dosage: UNK
     Route: 065
  5. PREDNISOLONE [Suspect]
     Active Substance: PREDNISOLONE
     Indication: Steroid therapy
     Dosage: UNK, INITIATED AT A DOSE OF 20 AND THEN TAPERED, DRUG CONTINUED AT TAPERING DOSES
     Route: 065
  6. PREDNISOLONE [Suspect]
     Active Substance: PREDNISOLONE
     Dosage: UNK, INITIATED AT A DOSE OF 20 AND THEN TAPERED, DRUG CONTINUED AT TAPERING DOSES
     Route: 065
  7. DABIGATRAN [Concomitant]
     Active Substance: DABIGATRAN
     Indication: Atrial fibrillation
     Dosage: 110 MG, BID
     Route: 065
  8. HEPARIN [Concomitant]
     Active Substance: HEPARIN SODIUM
     Indication: Atrial fibrillation
     Dosage: UNK, DAY 4 TO 11, TREATMENT COMPLETED
     Route: 065

REACTIONS (6)
  - Hypercoagulation [Recovered/Resolved]
  - Intracardiac thrombus [Recovered/Resolved]
  - Pulmonary thrombosis [Recovered/Resolved]
  - Arterial thrombosis [Recovered/Resolved]
  - Drug ineffective for unapproved indication [Unknown]
  - Off label use [Unknown]
